FAERS Safety Report 10902557 (Version 1)
Quarter: 2015Q1

REPORT INFORMATION
  Report Type: Spontaneous
  Country: US (occurrence: US)
  Receive Date: 20150310
  Receipt Date: 20150310
  Transmission Date: 20150721
  Serious: Yes (Other)
  Sender: FDA-Public Use
  Company Number: US-ACTAVIS-2015-04506

PATIENT
  Age: 55 Year
  Sex: Male

DRUGS (2)
  1. ANASTROZOLE (WATSON LABORATORIES) [Suspect]
     Active Substance: ANASTROZOLE
     Indication: CARDIOVASCULAR EVENT PROPHYLAXIS
     Dosage: 1 MG, DAILY
     Route: 065
  2. ANDROGEL [Suspect]
     Active Substance: TESTOSTERONE
     Indication: SEXUAL DYSFUNCTION
     Dosage: 50 MG, DAILY
     Route: 065

REACTIONS (3)
  - Drug-disease interaction [Recovered/Resolved]
  - Osteonecrosis of jaw [Recovering/Resolving]
  - Thrombosis [Unknown]
